FAERS Safety Report 15000509 (Version 1)
Quarter: 2018Q2

REPORT INFORMATION
  Report Type: Spontaneous
  Country: DE (occurrence: DE)
  Receive Date: 20180612
  Receipt Date: 20180612
  Transmission Date: 20180711
  Serious: Yes (Hospitalization)
  Sender: FDA-Public Use
  Company Number: DE-TEVA-2018-DE-905299

PATIENT
  Age: 72 Year
  Sex: Male

DRUGS (15)
  1. ASS 100 [Concomitant]
     Active Substance: ASPIRIN
     Dosage: 100 MG, 1-0-0-0
  2. LORAZEPAM. [Concomitant]
     Active Substance: LORAZEPAM
     Dosage: 1 MG, 0.5-0.5-1-0
  3. OXYCODON [Concomitant]
     Active Substance: OXYCODONE
     Dosage: 10 MG, 1-0-1-0
  4. NEXIUM MUPS 20 MG [Concomitant]
     Dosage: 20 MG, 1-0-1-0
  5. CARBOPLATIN. [Suspect]
     Active Substance: CARBOPLATIN
     Dosage: NK MG, NK
     Route: 065
  6. PACLITAXEL. [Suspect]
     Active Substance: PACLITAXEL
     Dosage: NK MG, NK
     Route: 065
  7. MACROGOL [Concomitant]
     Active Substance: POLYETHYLENE GLYCOLS
     Dosage: NK MG, 1-0-0-0
     Route: 065
  8. METOCLOPRAMID [Concomitant]
     Active Substance: METOCLOPRAMIDE
     Dosage: 10 MG,NEED
  9. ZOFRAN 8MG [Concomitant]
     Dosage: 8 MG, NEED
  10. METAMIZOL [Concomitant]
     Active Substance: METAMIZOLE SODIUM
     Dosage: NK MG, 40-40-40-40, DROP
  11. CITALOPRAM [Concomitant]
     Active Substance: CITALOPRAM HYDROBROMIDE
     Dosage: 10 MG, 1-0-0-0
  12. TAMSULOSIN [Concomitant]
     Active Substance: TAMSULOSIN
     Dosage: 0.4 MG, 0-0-1-0
  13. RAMIPRIL. [Concomitant]
     Active Substance: RAMIPRIL
     Dosage: 2.5 MG, 1-0-0-0
  14. FORMOTEROL [Concomitant]
     Active Substance: FORMOTEROL
     Dosage: 12 ?G, 1-0-1-0
  15. TORASEMID [Concomitant]
     Active Substance: TORSEMIDE
     Dosage: 5 MG, 2-0-0-0

REACTIONS (3)
  - General physical health deterioration [Unknown]
  - Anaemia [Unknown]
  - Condition aggravated [Unknown]
